FAERS Safety Report 5383168-2 (Version None)
Quarter: 2007Q3

REPORT INFORMATION
  Report Type: 
  Country: None (occurrence: None)
  Receive Date: 20070705
  Receipt Date: 20070626
  Transmission Date: 20080115
  Serious: Yes (Death)
  Sender: FDA-Public Use
  Company Number: 269-C5013-07061643

PATIENT
  Age: 69 Year
  Sex: Male
  Weight: 60.5 kg

DRUGS (1)
  1. CC-5013 (LENALIDOMIDE) (CAPSULES) [Suspect]
     Indication: MULTIPLE MYELOMA
     Dosage: 25 MG, DAILY, ORAL
     Route: 048
     Dates: start: 20070312, end: 20070101

REACTIONS (3)
  - CEREBRAL CIRCULATORY FAILURE [None]
  - LOSS OF CONSCIOUSNESS [None]
  - MULTIPLE MYELOMA [None]
